FAERS Safety Report 15961005 (Version 1)
Quarter: 2019Q1

REPORT INFORMATION
  Report Type: Spontaneous
  Country: US (occurrence: US)
  Receive Date: 20190122
  Receipt Date: 20190122
  Transmission Date: 20190417
  Serious: No
  Sender: FDA-Public Use
  Company Number: None

PATIENT
  Age: 45 Year
  Sex: Female

DRUGS (1)
  1. MYCOPHENOLATE MOF TAB 500 MG [Suspect]
     Active Substance: MYCOPHENOLATE MOFETIL
     Indication: IRIDOCYCLITIS
     Dates: start: 20181021

REACTIONS (1)
  - Bronchitis [None]

NARRATIVE: CASE EVENT DATE: 20190108
